FAERS Safety Report 21960384 (Version 5)
Quarter: 2023Q2

REPORT INFORMATION
  Report Type: Report from Study
  Country: TR (occurrence: None)
  Receive Date: 20230207
  Receipt Date: 20230515
  Transmission Date: 20230721
  Serious: Yes (Hospitalization)
  Sender: FDA-Public Use
  Company Number: TR-ROCHE-3278083

PATIENT
  Age: 36 Year
  Sex: Female
  Weight: 105 kg

DRUGS (9)
  1. ATEZOLIZUMAB [Suspect]
     Active Substance: ATEZOLIZUMAB
     Indication: HER2 positive breast cancer
     Dosage: START DATE OF MOST RECENT DOSE OF STUDY DRUG PRIOR TO SAE/ AE: 23/JAN/2023
     Route: 041
     Dates: start: 20230102
  2. ADO-TRASTUZUMAB EMTANSINE [Suspect]
     Active Substance: ADO-TRASTUZUMAB EMTANSINE
     Indication: HER2 positive breast cancer
     Dosage: START DATE OF MOST RECENT DOSE OF STUDY DRUG PRIOR TO SAE/ AE: 23/JAN/2023, 392 MG/KG
     Route: 042
     Dates: start: 20230102
  3. BENZYDAMINE HYDROCHLORIDE [Concomitant]
     Active Substance: BENZYDAMINE HYDROCHLORIDE
     Dates: start: 202301
  4. MONUROL [Concomitant]
     Active Substance: FOSFOMYCIN TROMETHAMINE
     Indication: Urinary tract infection
     Dates: start: 20230119
  5. DEKORT [Concomitant]
     Active Substance: DEXAMETHASONE
     Route: 042
     Dates: start: 20230123
  6. ZOFRAN [Concomitant]
     Active Substance: ONDANSETRON HYDROCHLORIDE
     Dates: start: 20230123
  7. METOCLOPRAMIDE [Concomitant]
     Active Substance: METOCLOPRAMIDE
     Indication: Nausea
     Dates: start: 20230127
  8. ULCEZOLE [Concomitant]
     Dates: start: 20230131, end: 20230202
  9. CIPRO [Concomitant]
     Active Substance: CIPROFLOXACIN HYDROCHLORIDE
     Indication: Urinary tract infection
     Dates: start: 20230112, end: 20230117

REACTIONS (1)
  - Immune-mediated hepatitis [Recovered/Resolved]

NARRATIVE: CASE EVENT DATE: 20230131
